FAERS Safety Report 13387482 (Version 3)
Quarter: 2019Q2

REPORT INFORMATION
  Report Type: Spontaneous
  Country: US (occurrence: US)
  Receive Date: 20170330
  Receipt Date: 20190620
  Transmission Date: 20190711
  Serious: No
  Sender: FDA-Public Use
  Company Number: US-PFIZER INC-2015010920

PATIENT
  Age: 59 Year
  Sex: Male

DRUGS (1)
  1. CAVERJECT [Suspect]
     Active Substance: ALPROSTADIL
     Indication: ERECTILE DYSFUNCTION
     Dosage: 20 MG, UNK

REACTIONS (3)
  - Drug ineffective [Not Recovered/Not Resolved]
  - Product storage error [Unknown]
  - Product prescribing error [Unknown]

NARRATIVE: CASE EVENT DATE: 201703
